FAERS Safety Report 9012280 (Version 1)
Quarter: 2012Q4

REPORT INFORMATION
  Report Type: Spontaneous
  Country: JP (occurrence: None)
  Receive Date: 20121231
  Receipt Date: 20121231
  Transmission Date: 20130627
  Serious: No
  Sender: FDA-Public Use
  Company Number: TCI2012A07242

PATIENT
  Sex: Female

DRUGS (1)
  1. ACTOS OD [Suspect]
     Indication: DIABETES MELLITUS
     Route: 048
     Dates: start: 201007, end: 201212

REACTIONS (2)
  - Ureteral neoplasm [None]
  - Nephrectomy [None]
